FAERS Safety Report 12358198 (Version 7)
Quarter: 2017Q1

REPORT INFORMATION
  Report Type: Report from Study
  Country: CA (occurrence: CA)
  Receive Date: 20160512
  Receipt Date: 20170206
  Transmission Date: 20170428
  Serious: Yes (Death, Hospitalization)
  Sender: FDA-Public Use
  Company Number: CA-ROCHE-1692595

PATIENT
  Age: 68 Year
  Sex: Male
  Weight: 73 kg

DRUGS (17)
  1. DECADRON [Concomitant]
     Active Substance: DEXAMETHASONE
     Indication: PREMEDICATION
     Route: 065
     Dates: start: 20150708
  2. KYTRIL [Concomitant]
     Active Substance: GRANISETRON HYDROCHLORIDE
     Indication: PREMEDICATION
     Route: 065
     Dates: start: 20150708
  3. VENETOCLAX [Suspect]
     Active Substance: VENETOCLAX
     Indication: NON-HODGKIN^S LYMPHOMA
     Dosage: MOST RECENT DOSE PRIOR TO EVENTS: 03/JAN/2016 (600 MG).?FORM AND FREQUENCY AS PER PROTOCOL
     Route: 048
     Dates: start: 20150708, end: 20160103
  4. STEMETIL [Concomitant]
     Active Substance: PROCHLORPERAZINE MALEATE
     Indication: PROPHYLAXIS OF NAUSEA AND VOMITING
     Route: 065
     Dates: start: 20150708
  5. ZOFRAN [Concomitant]
     Active Substance: ONDANSETRON HYDROCHLORIDE
     Indication: NAUSEA
     Route: 065
     Dates: start: 20160107, end: 20160423
  6. NEXIUM [Concomitant]
     Active Substance: ESOMEPRAZOLE MAGNESIUM
     Indication: GASTROINTESTINAL HAEMORRHAGE
     Route: 065
     Dates: start: 20160113, end: 20160423
  7. GRAVOL [Concomitant]
     Active Substance: DIMENHYDRINATE
     Indication: NAUSEA
     Route: 065
     Dates: start: 20160116, end: 20160423
  8. BENDAMUSTINE [Suspect]
     Active Substance: BENDAMUSTINE
     Indication: NON-HODGKIN^S LYMPHOMA
     Dosage: MOST RECENT DOSE PRIOR TO EVENTS: 04/DEC/2015 (170 MG, 1 IN 28 DAYS).?STARTING DOSE AND FORM AS PER
     Route: 042
     Dates: start: 20150708, end: 20151204
  9. TYLENOL [Concomitant]
     Active Substance: ACETAMINOPHEN
     Indication: PREMEDICATION
     Route: 065
     Dates: start: 20150708
  10. BENADRYL [Concomitant]
     Active Substance: DIPHENHYDRAMINE HYDROCHLORIDE
     Indication: PREMEDICATION
     Route: 065
     Dates: start: 20150708
  11. ROSUVASTATIN. [Concomitant]
     Active Substance: ROSUVASTATIN
     Indication: DYSLIPIDAEMIA
     Route: 065
     Dates: start: 2012
  12. ZOPICLONE [Concomitant]
     Active Substance: ZOPICLONE
     Indication: INSOMNIA
     Route: 065
     Dates: start: 2012
  13. VENTOLIN [Concomitant]
     Active Substance: ALBUTEROL SULFATE
     Indication: DYSPNOEA
     Route: 065
     Dates: start: 20160218, end: 20160424
  14. HALDOL [Concomitant]
     Active Substance: HALOPERIDOL
     Indication: DELIRIUM
     Route: 065
     Dates: start: 20160318, end: 20160424
  15. RITUXIMAB [Suspect]
     Active Substance: RITUXIMAB
     Indication: NON-HODGKIN^S LYMPHOMA
     Dosage: MOST RECENT DOSE PRIOR TO EVENTS: 03/JAN/2016 (709 MG, 1 IN 4 SEC).?STARTING DOSE AND FORM AS PER PR
     Route: 042
     Dates: start: 20150708, end: 20151203
  16. COLACE [Concomitant]
     Active Substance: DOCUSATE SODIUM
     Indication: CONSTIPATION
     Route: 065
     Dates: start: 20160107
  17. LOVENOX [Concomitant]
     Active Substance: ENOXAPARIN SODIUM
     Route: 065
     Dates: start: 20160330, end: 20160422

REACTIONS (5)
  - Respiratory arrest [Fatal]
  - Cytomegalovirus infection [Recovered/Resolved]
  - Pneumonia pseudomonal [Fatal]
  - Pneumocystis jirovecii pneumonia [Recovered/Resolved]
  - Pneumonia [Fatal]

NARRATIVE: CASE EVENT DATE: 20160103
